FAERS Safety Report 5839858-8 (Version None)
Quarter: 2008Q3

REPORT INFORMATION
  Report Type: 
  Country: None (occurrence: None)
  Receive Date: 20080811
  Receipt Date: 20080729
  Transmission Date: 20090109
  Serious: Yes (Hospitalization)
  Sender: FDA-Public Use
  Company Number: US-AMGEN-US298398

PATIENT
  Age: 29 Year
  Sex: Female
  Weight: 74.9 kg

DRUGS (1)
  1. PROCRIT [Suspect]
     Indication: ANAEMIA
     Route: 065
     Dates: start: 20050101, end: 20080601

REACTIONS (3)
  - BRAIN HYPOXIA [None]
  - HAEMOGLOBIN DECREASED [None]
  - SICKLE CELL ANAEMIA WITH CRISIS [None]
